FAERS Safety Report 6102880-0 (Version None)
Quarter: 2009Q1

REPORT INFORMATION
  Report Type: 
  Country: None (occurrence: None)
  Receive Date: 20090305
  Receipt Date: 20090220
  Transmission Date: 20090719
  Serious: Yes (Other)
  Sender: FDA-Public Use
  Company Number: GB-RANBAXY-2009RR-22133

PATIENT
  Age: 71 Year
  Sex: Male

DRUGS (8)
  1. CODEINE SUL HYT [Suspect]
     Indication: PAIN
     Dosage: UNK
     Route: 065
     Dates: end: 20090101
  2. DICLOFENAC [Suspect]
     Indication: PAIN
     Dosage: UNK
     Route: 065
     Dates: end: 20090101
  3. MADOPAR [Suspect]
     Indication: PARKINSON'S DISEASE
     Dosage: 125 MG, UNK
     Route: 065
  4. MADOPAR [Suspect]
     Dosage: 250 MG, QD
  5. REQUIP [Suspect]
     Indication: PARKINSON'S DISEASE
     Dosage: 2 MG, TID
     Route: 048
  6. REQUIP [Suspect]
     Dosage: 5 MG, TID
     Route: 048
  7. REQUIP [Suspect]
     Dosage: 7 MG, TID
  8. TRAMADOL HCL [Suspect]
     Indication: PAIN
     Dosage: 50 MG, BID
     Route: 065
     Dates: start: 20090101

REACTIONS (4)
  - ASTHENIA [None]
  - DYSSTASIA [None]
  - HALLUCINATION [None]
  - LETHARGY [None]
